FAERS Safety Report 5211285-6 (Version None)
Quarter: 2007Q1

REPORT INFORMATION
  Report Type: 
  Country: None (occurrence: None)
  Receive Date: 20061130
  Receipt Date: 20060503
  Transmission Date: 20070707
  Serious: Yes (Disabling, Other)
  Sender: FDA-Public Use
  Company Number: WAES 0605USA00720

PATIENT
  Age: 78 Year
  Sex: Female
  Weight: 82.5547 kg

DRUGS (1)
  1. FOSAMAX [Suspect]
     Dosage: PO
     Route: 048
     Dates: start: 19980101, end: 20060101

REACTIONS (1)
  - OSTEONECROSIS [None]
